FAERS Safety Report 4306648-7 (Version None)
Quarter: 2004Q1

REPORT INFORMATION
  Report Type: 
  Country: None (occurrence: None)
  Receive Date: 20040225
  Receipt Date: 20031015
  Transmission Date: 20041129
  Serious: No
  Sender: FDA-Public Use
  Company Number: US-BRISTOL-MYERS SQUIBB COMPANY-12433876

PATIENT
  Age: 26 Year
  Sex: Male
  Weight: 84 kg

DRUGS (1)
  1. EXCEDRIN ES TABS [Suspect]
     Indication: HEADACHE
     Dosage: ^2 TABLETS ORALLY 2 TO 3 HOURS FOR THE PAST 2 WEEKS.^
     Route: 048
     Dates: start: 20031001

REACTIONS (1)
  - DRUG INEFFECTIVE [None]
